FAERS Safety Report 8317311-X (Version None)
Quarter: 2012Q2

REPORT INFORMATION
  Report Type: 
  Country: None (occurrence: None)
  Receive Date: 20120427
  Receipt Date: 20120420
  Transmission Date: 20120825
  Serious: Yes (Other)
  Sender: FDA-Public Use
  Company Number: ES-GENZYME-CAMP-1002186

PATIENT
  Age: 31 Year
  Sex: Male

DRUGS (5)
  1. METHYLPREDNISOLONE [Suspect]
     Indication: SURGICAL PRECONDITIONING
     Dosage: UNK
     Route: 065
  2. MYCOPHENOLATE MOFETIL [Suspect]
     Indication: IMMUNOSUPPRESSANT DRUG THERAPY
     Dosage: UNK
     Route: 065
  3. PREDNISONE [Suspect]
     Indication: IMMUNOSUPPRESSANT DRUG THERAPY
     Dosage: UNK
     Route: 065
  4. SIROLIMUS [Suspect]
     Indication: IMMUNOSUPPRESSANT DRUG THERAPY
     Dosage: UNK
     Route: 065
  5. CAMPATH [Suspect]
     Indication: SURGICAL PRECONDITIONING
     Dosage: UNK
     Route: 065

REACTIONS (4)
  - BLOOD CREATININE INCREASED [None]
  - HYPERGLYCAEMIA [None]
  - FUNGAL INFECTION [None]
  - HYPERTENSION [None]
